FAERS Safety Report 10753802 (Version 1)
Quarter: 2015Q1

REPORT INFORMATION
  Report Type: Spontaneous
  Country: US (occurrence: None)
  Receive Date: 20150129
  Receipt Date: 20150129
  Transmission Date: 20150721
  Serious: No
  Sender: FDA-Public Use
  Company Number: None

PATIENT
  Age: 30 Year
  Sex: Female
  Weight: 113.4 kg

DRUGS (1)
  1. AZITHROMYCIN [Suspect]
     Active Substance: AZITHROMYCIN ANHYDROUS
     Indication: BRONCHITIS
     Dosage: 2 THEN 1 DAILY; 2 1ST DAY, 1 DAILY
     Route: 048
     Dates: start: 20150126, end: 20150128

REACTIONS (8)
  - Arthralgia [None]
  - Nasopharyngitis [None]
  - Panic reaction [None]
  - Vision blurred [None]
  - Dizziness [None]
  - Feeling abnormal [None]
  - Fear [None]
  - Heart rate increased [None]

NARRATIVE: CASE EVENT DATE: 20150126
